FAERS Safety Report 19731876 (Version 24)
Quarter: 2024Q4

REPORT INFORMATION
  Report Type: Report from Study
  Country: BR (occurrence: BR)
  Receive Date: 20210820
  Receipt Date: 20241227
  Transmission Date: 20250115
  Serious: Yes (Other)
  Sender: TAKEDA
  Company Number: BR-TAKEDA-2021TUS004680

PATIENT
  Sex: Male
  Weight: 19 kg

DRUGS (13)
  1. IDURSULFASE [Suspect]
     Active Substance: IDURSULFASE
     Indication: Mucopolysaccharidosis II
     Dosage: 2 DOSAGE FORM, 1/WEEK
     Dates: start: 20200303
  2. IDURSULFASE [Suspect]
     Active Substance: IDURSULFASE
     Dosage: 6.5 MILLILITER, 1/WEEK
     Dates: start: 20200310
  3. IDURSULFASE [Suspect]
     Active Substance: IDURSULFASE
     Dosage: 2 DOSAGE FORM, 1/WEEK
     Dates: start: 202007
  4. IDURSULFASE [Suspect]
     Active Substance: IDURSULFASE
     Dosage: 4.8 MILLILITER, 1/WEEK
     Dates: start: 2020
  5. IDURSULFASE [Suspect]
     Active Substance: IDURSULFASE
     Dosage: 3 DOSAGE FORM, 1/WEEK
     Dates: start: 202106
  6. IDURSULFASE [Suspect]
     Active Substance: IDURSULFASE
     Dosage: 2 DOSAGE FORM, 1/WEEK
  7. IDURSULFASE [Suspect]
     Active Substance: IDURSULFASE
     Dosage: 5.1 MILLILITER, 1/WEEK
  8. IDURSULFASE [Suspect]
     Active Substance: IDURSULFASE
     Dosage: 6 MILLILITER, 1/WEEK
     Dates: start: 2022
  9. IDURSULFASE [Suspect]
     Active Substance: IDURSULFASE
     Dosage: 8 DOSAGE FORM, MONTHLY
  10. IDURSULFASE [Suspect]
     Active Substance: IDURSULFASE
     Dosage: UNK UNK, 1/WEEK
     Dates: start: 20240913
  11. IDURSULFASE [Suspect]
     Active Substance: IDURSULFASE
     Dosage: UNK UNK, MONTHLY
  12. VEDOLIZUMAB [Suspect]
     Active Substance: VEDOLIZUMAB
     Indication: Product used for unknown indication
     Dosage: UNK
  13. RISPERIDONE [Concomitant]
     Active Substance: RISPERIDONE
     Indication: Autism spectrum disorder
     Dosage: 1 MILLIGRAM

REACTIONS (32)
  - Autism spectrum disorder [Unknown]
  - Hydrocephalus [Unknown]
  - Pneumonia [Unknown]
  - Vein rupture [Unknown]
  - Sensitivity to weather change [Unknown]
  - Poor venous access [Unknown]
  - Gait disturbance [Unknown]
  - Catarrh [Recovered/Resolved]
  - Malaise [Not Recovered/Not Resolved]
  - Mobility decreased [Unknown]
  - Muscle atrophy [Unknown]
  - Gait inability [Unknown]
  - Pain in extremity [Unknown]
  - Off label use [Unknown]
  - Incorrect dose administered [Unknown]
  - Inappropriate schedule of product administration [Unknown]
  - Frustration tolerance decreased [Recovered/Resolved]
  - Diarrhoea [Not Recovered/Not Resolved]
  - Vomiting [Unknown]
  - Crying [Recovered/Resolved]
  - Gingival swelling [Recovered/Resolved]
  - Influenza [Recovered/Resolved]
  - Infusion site erythema [Unknown]
  - Pain [Unknown]
  - Intervertebral disc protrusion [Unknown]
  - Gastrointestinal infection [Unknown]
  - Nervousness [Unknown]
  - Decreased appetite [Recovered/Resolved]
  - Stress [Unknown]
  - Product dose omission issue [Unknown]
  - Fatigue [Not Recovered/Not Resolved]
  - Pyrexia [Recovered/Resolved]

NARRATIVE: CASE EVENT DATE: 20200101
